FAERS Safety Report 12922972 (Version 6)
Quarter: 2017Q2

REPORT INFORMATION
  Report Type: Report from Study
  Country: US (occurrence: US)
  Receive Date: 20161109
  Receipt Date: 20170411
  Transmission Date: 20170830
  Serious: Yes (Hospitalization, Other)
  Sender: FDA-Public Use
  Company Number: US-PFIZER INC-2016514544

PATIENT
  Age: 60 Year
  Sex: Male
  Weight: 152 kg

DRUGS (7)
  1. VITAMIN D [Concomitant]
     Active Substance: CHOLECALCIFEROL
     Dosage: 400 IU, UNK (1 TABLET EVERY 7 DAYS)
     Route: 048
  2. VITAMIN D2 [Concomitant]
     Active Substance: ERGOCALCIFEROL
     Dosage: UNK
  3. ZOMETA [Concomitant]
     Active Substance: ZOLEDRONIC ACID
     Dosage: UNK, (EVERY FOUR WEEKS)
  4. SUTENT [Suspect]
     Active Substance: SUNITINIB MALATE
     Indication: METASTATIC RENAL CELL CARCINOMA
     Dosage: 50 MG, CYCLIC (DAILY FOR 4 WEEKS, OFF FOR 2 WEEKS)
     Route: 048
     Dates: start: 20160531
  5. CALCI-CHEW [Concomitant]
     Dosage: 1 DF, 2X/DAY
     Route: 048
  6. HYDROCODONE/ACETAMINOPHEN [Concomitant]
     Active Substance: ACETAMINOPHEN\HYDROCODONE
     Indication: PAIN
     Dosage: 1 DF, AS NEEDED (1 TABLET, 5 MG-325MG EVERY 4 HOURS AS NEEDED)
     Route: 048
  7. TYLENOL WITH CODEINE [Concomitant]
     Active Substance: ACETAMINOPHEN\CODEINE PHOSPHATE
     Indication: PAIN
     Dosage: 1 DF, AS NEEDED (1 TABLET, 30-300MG, EVERY 4 HOURS)
     Route: 048

REACTIONS (11)
  - Scrotal abscess [Unknown]
  - Ageusia [Unknown]
  - Stomatitis [Not Recovered/Not Resolved]
  - Hypokinesia [Unknown]
  - Nausea [Recovering/Resolving]
  - Vomiting [Unknown]
  - Hypocalcaemia [Unknown]
  - Blood pressure increased [Unknown]
  - Furuncle [Unknown]
  - Decreased appetite [Unknown]
  - Fatigue [Not Recovered/Not Resolved]

NARRATIVE: CASE EVENT DATE: 20170207
